FAERS Safety Report 24687562 (Version 1)
Quarter: 2024Q4

REPORT INFORMATION
  Report Type: Spontaneous
  Country: TR (occurrence: TR)
  Receive Date: 20241202
  Receipt Date: 20241202
  Transmission Date: 20250115
  Serious: Yes (Other)
  Sender: MERCK
  Company Number: TR-009507513-2412TUR000448

PATIENT
  Age: 74 Year
  Sex: Female
  Weight: 65 kg

DRUGS (7)
  1. JANUVIA [Suspect]
     Active Substance: SITAGLIPTIN PHOSPHATE
     Indication: Diabetes mellitus
     Dosage: UNK UNK, ONCE
     Route: 048
     Dates: start: 20241111, end: 20241114
  2. NORVASC [Concomitant]
     Active Substance: AMLODIPINE BESYLATE
     Dosage: 1 DOSAGE FORM, QD
  3. LEVOTHYROXINE SODIUM [Concomitant]
     Active Substance: LEVOTHYROXINE SODIUM
     Dosage: 1 DOSAGE FORM, QD
  4. METFORMIN HYDROCHLORIDE [Concomitant]
     Active Substance: METFORMIN HYDROCHLORIDE
     Dosage: 2 DOSAGE FORM, QD
  5. BENEXOL B12 FUERTE [Concomitant]
     Dosage: 1 DOSAGE FORM, QD
  6. VITAMIN B6 [Concomitant]
     Active Substance: PYRIDOXINE HYDROCHLORIDE
  7. FAMOTIDINE [Concomitant]
     Active Substance: FAMOTIDINE
     Dosage: 2 DOSAGE FORM, QD

REACTIONS (2)
  - Gastrointestinal haemorrhage [Recovered/Resolved]
  - Gastrointestinal pain [Recovered/Resolved]

NARRATIVE: CASE EVENT DATE: 20241113
